FAERS Safety Report 10105868 (Version 2)
Quarter: 2014Q2

REPORT INFORMATION
  Report Type: Other
  Country: US (occurrence: US)
  Receive Date: 20140424
  Receipt Date: 20140623
  Transmission Date: 20141212
  Serious: Yes (Hospitalization, Other)
  Sender: FDA-Public Use
  Company Number: US-GSKPPD-2014GSK002200

PATIENT
  Age: 72 Year
  Sex: Male

DRUGS (4)
  1. AVANDIA [Suspect]
     Indication: DIABETES MELLITUS
     Route: 048
     Dates: start: 2003, end: 2006
  2. AVANDAMET [Suspect]
     Indication: DIABETES MELLITUS
     Dosage: 4/1000MG
     Route: 048
     Dates: start: 2003, end: 2010
  3. HYZAAR [Concomitant]
     Dosage: 100/3MG
  4. DIGITEK [Concomitant]

REACTIONS (2)
  - Cerebrovascular accident [Recovered/Resolved]
  - Cerebrovascular accident [Recovered/Resolved]
